FAERS Safety Report 5836910-8 (Version None)
Quarter: 2008Q3

REPORT INFORMATION
  Report Type: 
  Country: None (occurrence: None)
  Receive Date: 20080805
  Receipt Date: 20080723
  Transmission Date: 20090109
  Serious: Yes (Hospitalization)
  Sender: FDA-Public Use
  Company Number: 15197

PATIENT
  Age: 43 Year
  Sex: Female
  Weight: 102.0593 kg

DRUGS (36)
  1. MORPHINE SULFATE [Suspect]
     Indication: PAIN MANAGEMENT
     Dosage: 60 MG TID ORALLY
     Route: 048
     Dates: start: 19950101, end: 20080601
  2. MORPHINE [Concomitant]
  3. LEVEMIR [Concomitant]
  4. HUMALOG [Concomitant]
  5. LASIX [Concomitant]
  6. LYRICA [Concomitant]
  7. ALTACE [Concomitant]
  8. POTASSIUM ER [Concomitant]
  9. CRESTOR [Concomitant]
  10. TRICOR [Concomitant]
  11. ZETIA [Concomitant]
  12. MOBIC [Concomitant]
  13. ZYRTEC [Concomitant]
  14. BACLOFEN [Concomitant]
  15. FLEXERIL [Concomitant]
  16. PREDNISONE TAB [Concomitant]
  17. NEURONTIN [Concomitant]
  18. PROZAC [Concomitant]
  19. XANAX [Concomitant]
  20. INDERAL [Concomitant]
  21. PRIMIDONE [Concomitant]
  22. GLUCOPHAGE [Concomitant]
  23. SYNTHROID [Concomitant]
  24. PEPCID [Concomitant]
  25. NEXIUM NASONEX [Concomitant]
  26. SINGULAIR [Concomitant]
  27. ADVAIR DISKUS 100/50 [Concomitant]
  28. XOPANEX [Concomitant]
  29. ATROVENT [Concomitant]
  30. COMBIVENT [Concomitant]
  31. DIFLUCAN [Concomitant]
  32. TESTASTERONE [Concomitant]
  33. SENECOT COLACE [Concomitant]
  34. NORVASC [Concomitant]
  35. MULTI-VITAMIN [Concomitant]
  36. OXYGEN [Concomitant]

REACTIONS (6)
  - DEHYDRATION [None]
  - DEPRESSED LEVEL OF CONSCIOUSNESS [None]
  - HYPERHIDROSIS [None]
  - NAUSEA [None]
  - OXYGEN SATURATION DECREASED [None]
  - RENAL FAILURE [None]
